FAERS Safety Report 22134632 (Version 1)
Quarter: 2023Q1

REPORT INFORMATION
  Report Type: Report from Study
  Country: PK (occurrence: PK)
  Receive Date: 20230324
  Receipt Date: 20230324
  Transmission Date: 20230418
  Serious: Yes (Death)
  Sender: FDA-Public Use
  Company Number: PK-002147023-NVSC2023PK067715

PATIENT
  Sex: Female
  Weight: 48 kg

DRUGS (1)
  1. AFINITOR [Suspect]
     Active Substance: EVEROLIMUS
     Indication: Renal cell carcinoma
     Dosage: 10 MG, QD
     Route: 048
     Dates: start: 20220615, end: 20230202

REACTIONS (3)
  - Renal cell carcinoma [Fatal]
  - Malignant neoplasm progression [Fatal]
  - Pleural effusion [Fatal]
